FAERS Safety Report 6779176-7 (Version None)
Quarter: 2010Q2

REPORT INFORMATION
  Report Type: 
  Country: None (occurrence: None)
  Receive Date: 20100618
  Receipt Date: 20100617
  Transmission Date: 20101027
  Serious: Yes (Life-Threatening, Hospitalization)
  Sender: FDA-Public Use
  Company Number: BR-ROCHE-674988

PATIENT
  Sex: Female
  Weight: 68 kg

DRUGS (11)
  1. TOCILIZUMAB [Suspect]
     Indication: RHEUMATOID ARTHRITIS
     Dosage: FORM: INFUSION
     Route: 042
     Dates: start: 20080206, end: 20091110
  2. TOCILIZUMAB [Suspect]
     Dosage: PERMANENTLY DICONTINUED
     Route: 042
     Dates: end: 20100127
  3. TOCILIZUMAB [Suspect]
     Dosage: PATIENT WAS PREVIOUSLY ENROLLED IN WA18063.
     Route: 042
  4. PREDNISONE [Concomitant]
     Dates: start: 20040101
  5. MELOXICAM [Concomitant]
     Dates: start: 20040101, end: 20091101
  6. FOLIC ACID [Concomitant]
     Dates: start: 20040101, end: 20100120
  7. FLUOXETINE [Concomitant]
     Dates: start: 20070311
  8. OMEPRAZOLE [Concomitant]
     Dates: start: 20061130
  9. CHLOROQUINE PHOSPHATE [Concomitant]
     Dosage: DRUG: CHLOROQUINE DIPHOSPHATE
     Dates: start: 20070809, end: 20100120
  10. METHOTREXATE [Concomitant]
     Dosage: FREQUENCY: QS
     Route: 048
     Dates: start: 20040101, end: 20100120
  11. CORTICOSTEROID NOS [Concomitant]
     Route: 048

REACTIONS (1)
  - LUNG NEOPLASM [None]
